FAERS Safety Report 7078256-9 (Version None)
Quarter: 2010Q4

REPORT INFORMATION
  Report Type: 
  Country: None (occurrence: None)
  Receive Date: 20101101
  Receipt Date: 20101101
  Transmission Date: 20110411
  Serious: No
  Sender: FDA-Public Use
  Company Number: None

PATIENT
  Weight: 64 kg

DRUGS (2)
  1. ZOMIG [Suspect]
     Indication: MIGRAINE
     Dosage: 5 MG PRN ORAL
     Route: 048
     Dates: start: 20101022
  2. ZOMIG [Suspect]
     Indication: MIGRAINE
     Dosage: 5 MG PRN ORAL
     Route: 048
     Dates: start: 20101028

REACTIONS (1)
  - MYALGIA [None]
